FAERS Safety Report 7534887-0 (Version None)
Quarter: 2011Q2

REPORT INFORMATION
  Report Type: 
  Country: None (occurrence: None)
  Receive Date: 20110609
  Receipt Date: 20081127
  Transmission Date: 20111010
  Serious: Yes (Death)
  Sender: FDA-Public Use
  Company Number: PHHY2008CA30020

PATIENT
  Sex: Male

DRUGS (1)
  1. ZOMETA [Suspect]
     Indication: HEPATIC NEOPLASM MALIGNANT
     Dosage: 3.3 MG, UNK
     Route: 042
     Dates: start: 20080214, end: 20080904

REACTIONS (1)
  - DEATH [None]
